FAERS Safety Report 7703319-1 (Version None)
Quarter: 2011Q3

REPORT INFORMATION
  Report Type: 
  Country: None (occurrence: None)
  Receive Date: 20110823
  Receipt Date: 20110811
  Transmission Date: 20111222
  Serious: Yes (Hospitalization, Other)
  Sender: FDA-Public Use
  Company Number: CA-ELI_LILLY_AND_COMPANY-CA201108003741

PATIENT
  Sex: Female
  Weight: 96 kg

DRUGS (10)
  1. CYCLOBENZAPRINE [Concomitant]
  2. ZYPREXA [Suspect]
     Indication: BIPOLAR DISORDER
     Dosage: 20 MG, EACH EVENING
  3. ZYPREXA [Suspect]
     Dosage: 5 MG, EACH EVENING
  4. CELEXA [Concomitant]
  5. CLONAZEPAM [Concomitant]
  6. ZYPREXA [Suspect]
     Dosage: 15 MG, EACH EVENING
  7. VIOXX [Concomitant]
  8. SEROQUEL [Concomitant]
  9. VALPROATE SODIUM [Concomitant]
  10. ZYPREXA [Suspect]
     Dosage: 10 MG, EACH EVENING

REACTIONS (22)
  - CHOLELITHIASIS [None]
  - HEPATIC FUNCTION ABNORMAL [None]
  - OEDEMA [None]
  - HEPATIC ENZYME INCREASED [None]
  - HYPERTENSION [None]
  - BLOOD CHOLESTEROL INCREASED [None]
  - RENAL DISORDER [None]
  - PANCREATITIS [None]
  - ALANINE AMINOTRANSFERASE INCREASED [None]
  - ANAEMIA [None]
  - ORAL CANDIDIASIS [None]
  - CONVULSION [None]
  - DIABETES MELLITUS [None]
  - DIABETIC NEUROPATHY [None]
  - BLOOD PRESSURE INCREASED [None]
  - EAR PAIN [None]
  - WEIGHT INCREASED [None]
  - DYSPNOEA [None]
  - DYSLIPIDAEMIA [None]
  - CYST RUPTURE [None]
  - HYPERGLYCAEMIA [None]
  - ASPARTATE AMINOTRANSFERASE INCREASED [None]
